FAERS Safety Report 8000982-5 (Version None)
Quarter: 2011Q4

REPORT INFORMATION
  Report Type: 
  Country: None (occurrence: None)
  Receive Date: 20111222
  Receipt Date: 20101207
  Transmission Date: 20120403
  Serious: No
  Sender: FDA-Public Use
  Company Number: US-GLAXOSMITHKLINE-A0898375A

PATIENT
  Age: 49 Year
  Sex: Female

DRUGS (4)
  1. FLUTICASONE PROPIONATE [Suspect]
     Indication: SINUSITIS
     Dosage: 1SPR TWICE PER DAY
     Route: 045
     Dates: start: 20100917, end: 20101129
  2. THYROID TAB [Concomitant]
  3. LEVOTHYROXINE SODIUM [Concomitant]
  4. CEPHALEXIN [Concomitant]
     Route: 048
     Dates: start: 20100917

REACTIONS (4)
  - HEADACHE [None]
  - EPISTAXIS [None]
  - DISCOMFORT [None]
  - SINUS HEADACHE [None]
